FAERS Safety Report 7810785-X (Version None)
Quarter: 2011Q4

REPORT INFORMATION
  Report Type: 
  Country: None (occurrence: None)
  Receive Date: 20111011
  Receipt Date: 20110926
  Transmission Date: 20120403
  Serious: Yes (Hospitalization)
  Sender: FDA-Public Use
  Company Number: 1000024439

PATIENT
  Age: 49 Year
  Sex: Female

DRUGS (3)
  1. ESCITALOPRAM [Suspect]
     Indication: DEPRESSION
     Dosage: 1 DF (1 DOSAGE FORMS,1 IN 1 D),ORAL
     Route: 048
     Dates: start: 20110401, end: 20110730
  2. ABILIFY (ARIPIPRAZOLE) (15 MILLIGRAM, TABLETS) [Suspect]
     Indication: DEPRESSION
     Dosage: 1 DF (1 DOSAGE FORMS,1 IN 1 D),ORAL
     Route: 048
     Dates: start: 20110401, end: 20110730
  3. PARKINANE (TRIHEXYPHENIDYL HYDROCHLORIDE) (5 MILLIGRAM, CAPSULES) [Suspect]
     Indication: DEPRESSION
     Dosage: 1 DF (1 DOSAGE FORMS,1 IN 1 D),ORAL
     Route: 048
     Dates: start: 20110401, end: 20110730

REACTIONS (2)
  - APHASIA [None]
  - CEREBRAL HAEMATOMA [None]
